FAERS Safety Report 10103894 (Version 1)
Quarter: 2014Q2

REPORT INFORMATION
  Report Type: Spontaneous
  Country: DE (occurrence: DE)
  Receive Date: 20140424
  Receipt Date: 20140424
  Transmission Date: 20141212
  Serious: Yes (Congenital Anomaly)
  Sender: FDA-Public Use
  Company Number: DE-TEVA-477425GER

PATIENT
  Age: 1 Day
  Sex: Male

DRUGS (2)
  1. SERTRALINE [Suspect]
     Route: 064
  2. FOLS?URE [Concomitant]
     Route: 064

REACTIONS (1)
  - Hypospadias [Not Recovered/Not Resolved]
